FAERS Safety Report 7920339-2 (Version None)
Quarter: 2011Q4

REPORT INFORMATION
  Report Type: 
  Country: None (occurrence: None)
  Receive Date: 20111117
  Receipt Date: 20111107
  Transmission Date: 20120403
  Serious: Yes (Other)
  Sender: FDA-Public Use
  Company Number: BE-ELI_LILLY_AND_COMPANY-BE201105007347

PATIENT
  Sex: Male
  Weight: 62 kg

DRUGS (1)
  1. ZYPREXA [Suspect]
     Indication: ABNORMAL BEHAVIOUR
     Dosage: 5 MG, QD
     Dates: start: 20110224, end: 20110407

REACTIONS (2)
  - OPTIC ATROPHY [None]
  - BLINDNESS [None]
